FAERS Safety Report 13087138 (Version 1)
Quarter: 2017Q1

REPORT INFORMATION
  Report Type: Spontaneous
  Country: US (occurrence: US)
  Receive Date: 20170105
  Receipt Date: 20170105
  Transmission Date: 20170428
  Serious: No
  Sender: FDA-Public Use
  Company Number: US-ASTRAZENECA-2016SF34936

PATIENT
  Age: 741 Month
  Sex: Female
  Weight: 115.7 kg

DRUGS (11)
  1. LISINOPRIL. [Suspect]
     Active Substance: LISINOPRIL
     Indication: CHEST PAIN
     Route: 048
  2. LEVOTHYROXINE. [Concomitant]
     Active Substance: LEVOTHYROXINE
     Indication: THYROID DISORDER
     Route: 048
  3. METOPROLOL TARTRATE. [Suspect]
     Active Substance: METOPROLOL TARTRATE
     Dosage: 12.5 MG IN AM AND 12.5 MG AT NIGHT UNKNOWN
     Route: 048
     Dates: start: 2015
  4. BRILINTA [Suspect]
     Active Substance: TICAGRELOR
     Indication: STENT PLACEMENT
     Route: 048
     Dates: start: 20141229
  5. METOPROLOL TARTRATE. [Suspect]
     Active Substance: METOPROLOL TARTRATE
     Dosage: 50.0MG UNKNOWN
     Route: 048
  6. ISOSORBRIDE [Concomitant]
     Route: 048
     Dates: start: 201412
  7. ISOSORBRIDE [Concomitant]
     Route: 048
     Dates: start: 201412
  8. LISINOPRIL. [Suspect]
     Active Substance: LISINOPRIL
     Indication: CHEST PAIN
     Route: 048
     Dates: start: 201410
  9. LIPITOR [Concomitant]
     Active Substance: ATORVASTATIN CALCIUM
     Route: 048
     Dates: start: 2015
  10. ASPIRIN. [Concomitant]
     Active Substance: ASPIRIN
     Indication: SUPPLEMENTATION THERAPY
     Route: 048
     Dates: start: 20141229
  11. AMLODIPINE [Concomitant]
     Active Substance: AMLODIPINE BESYLATE
     Indication: BLOOD PRESSURE ABNORMAL
     Route: 048
     Dates: start: 201412

REACTIONS (9)
  - Malaise [Unknown]
  - Osteoporosis [Unknown]
  - Arterial occlusive disease [Unknown]
  - Chest pain [Unknown]
  - Thyroid hormones increased [Unknown]
  - Blood parathyroid hormone increased [Unknown]
  - Contusion [Unknown]
  - Hypotension [Unknown]
  - Off label use [Unknown]

NARRATIVE: CASE EVENT DATE: 201502
